FAERS Safety Report 12294439 (Version 1)
Quarter: 2016Q2

REPORT INFORMATION
  Report Type: Spontaneous
  Country: US (occurrence: US)
  Receive Date: 20160422
  Receipt Date: 20160422
  Transmission Date: 20160815
  Serious: No
  Sender: FDA-Public Use
  Company Number: US-GLENMARK PHARMACEUTICALS INC, USA.-2015GMK018399

PATIENT

DRUGS (1)
  1. RIZATRIPTAN OD TABLETS [Suspect]
     Active Substance: RIZATRIPTAN
     Indication: MIGRAINE
     Dosage: UNK

REACTIONS (5)
  - Product closure removal difficult [Unknown]
  - Product substitution issue [Unknown]
  - Product solubility abnormal [Unknown]
  - Drug ineffective [Unknown]
  - Product blister packaging issue [None]
